FAERS Safety Report 19482504 (Version 1)
Quarter: 2021Q3

REPORT INFORMATION
  Report Type: Spontaneous
  Country: DE (occurrence: DE)
  Receive Date: 20210701
  Receipt Date: 20210701
  Transmission Date: 20211014
  Serious: Yes (Hospitalization)
  Sender: FDA-Public Use
  Company Number: NVSC2021DE142732

PATIENT
  Age: 49 Year
  Sex: Male
  Weight: 83 kg

DRUGS (2)
  1. ATORVASTATIN [Suspect]
     Active Substance: ATORVASTATIN
     Indication: PRODUCT USED FOR UNKNOWN INDICATION
     Dosage: 20 MG, QD (20 MG, 1?0?0?0, TABLETTEN)
     Route: 048
  2. HYDROCHLOROTHIAZIDE,RAMIPRIL [Suspect]
     Active Substance: HYDROCHLOROTHIAZIDE\RAMIPRIL
     Indication: PRODUCT USED FOR UNKNOWN INDICATION
     Dosage: UNK UNK, QD (12.5|5 MG,1?0?0?0, TABLETTEN)
     Route: 048

REACTIONS (5)
  - Visual impairment [Unknown]
  - Hyperglycaemia [Unknown]
  - Thirst [Unknown]
  - Fatigue [Unknown]
  - Disturbance in attention [Unknown]
